FAERS Safety Report 7590849-9 (Version None)
Quarter: 2011Q3

REPORT INFORMATION
  Report Type: 
  Country: None (occurrence: None)
  Receive Date: 20110705
  Receipt Date: 20110623
  Transmission Date: 20111222
  Serious: Yes (Other)
  Sender: FDA-Public Use
  Company Number: PHHY2010US62462

PATIENT
  Sex: Female

DRUGS (8)
  1. PROCAL [Concomitant]
  2. PROTONIX [Concomitant]
  3. PREDNISONE [Concomitant]
  4. SODIUM BICARBONATE [Concomitant]
  5. NEORAL [Suspect]
     Dosage: 25 MG, BID
  6. CELLCEPT [Concomitant]
  7. SMZ-TMP [Concomitant]
  8. NEFELIPIN [Concomitant]

REACTIONS (1)
  - HIP FRACTURE [None]
